FAERS Safety Report 8804784 (Version 1)
Quarter: 2012Q4

REPORT INFORMATION
  Report Type: 
  Country: US (occurrence: US)
  Receive Date: 20120924
  Receipt Date: 20120924
  Transmission Date: 20130627
  Serious: No
  Sender: FDA-Public Use
  Company Number: US-ALLERGAN-1205832US

PATIENT
  Sex: Female

DRUGS (3)
  1. AZELEX� [Suspect]
     Indication: ACNE
     Dosage: thin smear to affected area, QD
     Route: 061
     Dates: start: 201204
  2. AZELEX� [Suspect]
     Indication: ROSACEA
     Dosage: thin smear to affected area, qd
     Route: 061
     Dates: start: 20120709
  3. ZYRTEC [Concomitant]
     Indication: ALLERGY
     Dosage: UNK
     Route: 048

REACTIONS (2)
  - Acne [Recovering/Resolving]
  - Drug ineffective [Unknown]
